FAERS Safety Report 11320914 (Version 1)
Quarter: 2015Q3

REPORT INFORMATION
  Report Type: Report from Study
  Country: DE (occurrence: DE)
  Receive Date: 20150729
  Receipt Date: 20150729
  Transmission Date: 20151125
  Serious: Yes (Hospitalization)
  Sender: FDA-Public Use
  Company Number: DE-BAXALTA-2013BAX004247

PATIENT
  Age: 21 Year
  Sex: Female
  Weight: 67 kg

DRUGS (5)
  1. CEPROTIN [Suspect]
     Active Substance: PROTEIN C
     Dosage: 7000 IU, 1X A DAY
     Dates: start: 20130112, end: 20130112
  2. CEPROTIN [Suspect]
     Active Substance: PROTEIN C
     Dosage: 2000 IU, 1X A DAY
  3. CEPROTIN [Suspect]
     Active Substance: PROTEIN C
     Dosage: 5000 IU, 1X A DAY
     Dates: end: 20130114
  4. CEPROTIN [Suspect]
     Active Substance: PROTEIN C
     Indication: PROTEIN C DEFICIENCY
     Dosage: 3000 IU, 2X A DAY
     Route: 042
     Dates: start: 20020114
  5. CEPROTIN [Suspect]
     Active Substance: PROTEIN C
     Dosage: 4000 IU, 1X A DAY
     Dates: end: 20130116

REACTIONS (1)
  - Purpura fulminans [Recovered/Resolved]

NARRATIVE: CASE EVENT DATE: 20130112
